FAERS Safety Report 4621369-9 (Version None)
Quarter: 2005Q1

REPORT INFORMATION
  Report Type: 
  Country: None (occurrence: None)
  Receive Date: 20050323
  Receipt Date: 20050323
  Transmission Date: 20050727
  Serious: No
  Sender: FDA-Public Use
  Company Number: None

PATIENT
  Age: 38 Year
  Sex: Female
  Weight: 69.4003 kg

DRUGS (2)
  1. LEXAPRO [Suspect]
     Indication: ANXIETY
     Dosage: ONE TAB    EACH DAY   ORAL
     Route: 048
     Dates: start: 20050211, end: 20050309
  2. LEXAPRO [Suspect]
     Indication: DEPRESSION
     Dosage: ONE TAB    EACH DAY   ORAL
     Route: 048
     Dates: start: 20050211, end: 20050309

REACTIONS (6)
  - BURNING SENSATION [None]
  - DEPRESSION [None]
  - FEELING ABNORMAL [None]
  - HOT FLUSH [None]
  - INSOMNIA [None]
  - SUICIDAL IDEATION [None]
